FAERS Safety Report 24886609 (Version 1)
Quarter: 2025Q1

REPORT INFORMATION
  Report Type: Spontaneous
  Country: FR (occurrence: FR)
  Receive Date: 20250126
  Receipt Date: 20250126
  Transmission Date: 20250408
  Serious: Yes (Hospitalization)
  Sender: JUBILANT
  Company Number: FR-JUBILANT CADISTA PHARMACEUTICALS-2025FR000090

PATIENT
  Age: 66 Year
  Sex: Male

DRUGS (3)
  1. LEVOFLOXACIN [Suspect]
     Active Substance: LEVOFLOXACIN
     Indication: Urinary tract infection
  2. LEVOFLOXACIN [Suspect]
     Active Substance: LEVOFLOXACIN
  3. COTRIMOXAZOLE [Suspect]
     Active Substance: SULFAMETHOXAZOLE\TRIMETHOPRIM
     Indication: Urinary tract infection
     Dosage: 1 DOSAGE FORM, 2 TIMES PER DAY

REACTIONS (6)
  - Mania [Recovered/Resolved]
  - Incoherent [Recovered/Resolved]
  - Thinking abnormal [Recovered/Resolved]
  - Euphoric mood [Recovered/Resolved]
  - Insomnia [Recovered/Resolved]
  - Delusional disorder, persecutory type [Recovered/Resolved]
